FAERS Safety Report 16006235 (Version 2)
Quarter: 2019Q3

REPORT INFORMATION
  Report Type: Spontaneous
  Country: US (occurrence: US)
  Receive Date: 20190226
  Receipt Date: 20190905
  Transmission Date: 20191004
  Serious: No
  Sender: FDA-Public Use
  Company Number: US-MYLANLABS-2019M1013666

PATIENT
  Age: 73 Year
  Sex: Female

DRUGS (1)
  1. LIDOCAINE PATCH [Suspect]
     Active Substance: LIDOCAINE
     Indication: BACK PAIN
     Dosage: UNK UNK, PRN
     Route: 003
     Dates: end: 20190210

REACTIONS (9)
  - Product size issue [Unknown]
  - Hyperhidrosis [Unknown]
  - Product quality issue [Unknown]
  - Frustration tolerance decreased [Unknown]
  - Product adhesion issue [Unknown]
  - Drug ineffective [Unknown]
  - Expired product administered [Unknown]
  - Off label use [Unknown]
  - Wrong technique in product usage process [Unknown]

NARRATIVE: CASE EVENT DATE: 20190210
